FAERS Safety Report 9869411 (Version 2)
Quarter: 2014Q1

REPORT INFORMATION
  Report Type: Report from Study
  Country: CL (occurrence: CL)
  Receive Date: 20140205
  Receipt Date: 20140213
  Transmission Date: 20141002
  Serious: Yes (Hospitalization, Other)
  Sender: FDA-Public Use
  Company Number: PHHY2014CL013352

PATIENT
  Age: 86 Year
  Sex: Female

DRUGS (10)
  1. TAREG [Suspect]
     Indication: HYPERTENSION
     Dosage: 160 MG, UNK
     Route: 048
     Dates: start: 2000
  2. TAREG [Suspect]
     Indication: CARDIAC DISORDER
     Dosage: 80 MG, UNK
     Route: 048
     Dates: start: 20140130
  3. BETAPLEX//CARVEDILOL [Concomitant]
     Indication: CARDIAC DISORDER
     Dosage: 12.5 MG, DAILY
     Route: 048
  4. ISMO [Concomitant]
     Indication: CARDIAC DISORDER
  5. CARDIO ASPIRIN [Concomitant]
     Indication: CARDIAC DISORDER
     Dosage: 100 MG, UNK
  6. ATORVASTATIN [Concomitant]
     Indication: BLOOD CHOLESTEROL
  7. DAFLON                             /01026201/ [Concomitant]
     Indication: VARICOSE VEIN
  8. LOSARTAN [Concomitant]
     Indication: CARDIAC DISORDER
  9. SALICYLATES [Concomitant]
  10. BETA BLOCKING AGENTS [Concomitant]

REACTIONS (14)
  - Cardiopulmonary failure [Recovering/Resolving]
  - Dyspnoea [Unknown]
  - Orthopnoea [Unknown]
  - Chest discomfort [Unknown]
  - Palpitations [Unknown]
  - Nausea [Unknown]
  - Fatigue [None]
  - Cough [Unknown]
  - Cardiomegaly [Not Recovered/Not Resolved]
  - Diabetes mellitus [Unknown]
  - Polyuria [Unknown]
  - Dry mouth [Unknown]
  - Weight increased [Unknown]
  - Diarrhoea [Not Recovered/Not Resolved]
